FAERS Safety Report 12632092 (Version 2)
Quarter: 2016Q3

REPORT INFORMATION
  Report Type: Spontaneous
  Country: US (occurrence: US)
  Receive Date: 20160808
  Receipt Date: 20160808
  Transmission Date: 20161109
  Serious: No
  Sender: FDA-Public Use
  Company Number: US-BEH-2016061869

PATIENT
  Age: 69 Year
  Sex: Female
  Weight: 48 kg

DRUGS (24)
  1. LMX [Concomitant]
     Active Substance: LIDOCAINE
  2. FLOVENT [Concomitant]
     Active Substance: FLUTICASONE PROPIONATE
  3. PULMICORT TURBUHALER [Concomitant]
     Active Substance: BUDESONIDE
  4. CLARITINE [Concomitant]
     Active Substance: LORATADINE
  5. DIPHENHYDRAMINE. [Concomitant]
     Active Substance: DIPHENHYDRAMINE
  6. AMITRIPTYLINE [Concomitant]
     Active Substance: AMITRIPTYLINE
  7. ACETAMINOPHEN. [Concomitant]
     Active Substance: ACETAMINOPHEN
  8. SINGULAIR [Concomitant]
     Active Substance: MONTELUKAST SODIUM
  9. PATANASE [Concomitant]
     Active Substance: OLOPATADINE HYDROCHLORIDE
  10. NEXIUM [Concomitant]
     Active Substance: ESOMEPRAZOLE MAGNESIUM
  11. LEVAQUIN [Concomitant]
     Active Substance: LEVOFLOXACIN
  12. FLONASE [Concomitant]
     Active Substance: FLUTICASONE PROPIONATE
  13. IMITREX [Concomitant]
     Active Substance: SUMATRIPTAN SUCCINATE
  14. HIZENTRA [Suspect]
     Active Substance: HUMAN IMMUNOGLOBULIN G
     Indication: IMMUNODEFICIENCY COMMON VARIABLE
     Route: 058
  15. ATROVENT [Concomitant]
     Active Substance: IPRATROPIUM BROMIDE
  16. LISINOPRIL. [Concomitant]
     Active Substance: LISINOPRIL
  17. LIDOCAINE/PRILOCAINE [Concomitant]
     Active Substance: LIDOCAINE\PRILOCAINE
  18. ZOFRAN [Concomitant]
     Active Substance: ONDANSETRON HYDROCHLORIDE
  19. KLOR-CON [Concomitant]
     Active Substance: POTASSIUM CHLORIDE
  20. ASPIRIN. [Concomitant]
     Active Substance: ASPIRIN
  21. HIZENTRA [Suspect]
     Active Substance: HUMAN IMMUNOGLOBULIN G
     Indication: HYPOGAMMAGLOBULINAEMIA
     Route: 058
  22. EPIPEN [Concomitant]
     Active Substance: EPINEPHRINE
  23. FUROSEMIDE. [Concomitant]
     Active Substance: FUROSEMIDE
  24. METOPROLOL. [Concomitant]
     Active Substance: METOPROLOL

REACTIONS (2)
  - Lymphoedema [Unknown]
  - Upper respiratory tract infection [Unknown]

NARRATIVE: CASE EVENT DATE: 20160101
